FAERS Safety Report 5409920-2 (Version None)
Quarter: 2007Q3

REPORT INFORMATION
  Report Type: 
  Country: None (occurrence: None)
  Receive Date: 20070809
  Receipt Date: 20070702
  Transmission Date: 20080115
  Serious: Yes (Other)
  Sender: FDA-Public Use
  Company Number: BR-PFIZER INC-2007040895

PATIENT
  Sex: Female
  Weight: 52 kg

DRUGS (10)
  1. LIPITOR [Suspect]
     Indication: HYPERCHOLESTEROLAEMIA
     Route: 048
  2. FRONTAL [Suspect]
     Indication: ANXIETY
     Route: 048
  3. ATENOLOL [Concomitant]
     Route: 048
  4. FOSAMAX [Concomitant]
     Route: 048
  5. ARCALION [Concomitant]
     Route: 048
  6. ASCORBIC ACID [Concomitant]
     Route: 048
  7. VITAMIN E [Concomitant]
     Route: 048
  8. MULTIVITAMINS WITH MINERALS [Concomitant]
     Route: 048
  9. GINKGO BILOBA [Concomitant]
     Route: 048
  10. CALCIUM CHLORIDE [Concomitant]

REACTIONS (8)
  - ALOPECIA [None]
  - AMNESIA [None]
  - ANXIETY [None]
  - BLOOD CHOLESTEROL INCREASED [None]
  - BREAST DISORDER [None]
  - HYPERTENSION [None]
  - INSOMNIA [None]
  - INTERVERTEBRAL DISC PROTRUSION [None]
